FAERS Safety Report 16098433 (Version 1)
Quarter: 2019Q1

REPORT INFORMATION
  Report Type: Spontaneous
  Country: GB (occurrence: GB)
  Receive Date: 20190321
  Receipt Date: 20190321
  Transmission Date: 20190418
  Serious: Yes (Other)
  Sender: FDA-Public Use
  Company Number: GB-TEVA-2019-GB-1026411

PATIENT
  Age: 83 Year
  Sex: Male

DRUGS (2)
  1. FELODIPINE. [Concomitant]
     Active Substance: FELODIPINE
  2. LANSOPRAZOLE. [Suspect]
     Active Substance: LANSOPRAZOLE
     Dosage: 15 MILLIGRAM DAILY; IN THE MORNING.
     Route: 048

REACTIONS (1)
  - Hyponatraemia [Recovered/Resolved]
